FAERS Safety Report 10100054 (Version 1)
Quarter: 2014Q2

REPORT INFORMATION
  Report Type: Spontaneous
  Country: IN (occurrence: IN)
  Receive Date: 20140423
  Receipt Date: 20140423
  Transmission Date: 20141212
  Serious: Yes (Other)
  Sender: FDA-Public Use
  Company Number: PHHY2014IN046488

PATIENT
  Age: 30 Year
  Sex: Male

DRUGS (3)
  1. CLARITHROMYCIN [Suspect]
     Indication: UPPER RESPIRATORY TRACT INFECTION
     Route: 048
  2. LANSOPRAZOLE [Concomitant]
  3. AMOXYCILLIN [Concomitant]

REACTIONS (6)
  - Drug eruption [Recovered/Resolved]
  - Skin lesion [Recovered/Resolved]
  - Pruritus genital [Recovered/Resolved]
  - Macule [Recovered/Resolved]
  - Erythema [Recovered/Resolved]
  - Pruritus [Recovered/Resolved]
